FAERS Safety Report 5667805-0 (Version None)
Quarter: 2008Q1

REPORT INFORMATION
  Report Type: 
  Country: None (occurrence: None)
  Receive Date: 20080315
  Receipt Date: 20080131
  Transmission Date: 20080703
  Serious: No
  Sender: FDA-Public Use
  Company Number: US-ABBOTT-08P-163-0436116-00

PATIENT
  Sex: Female
  Weight: 86.26 kg

DRUGS (5)
  1. HUMIRA [Suspect]
     Indication: CROHN'S DISEASE
     Dosage: LOADING DOSE
     Route: 058
     Dates: start: 20080117, end: 20080117
  2. HUMIRA [Suspect]
     Dates: start: 20080213
  3. DULOXETINE HYDROCHLORIDE [Concomitant]
     Indication: DRUG USE FOR UNKNOWN INDICATION
  4. MESALAMINE [Concomitant]
     Indication: DRUG USE FOR UNKNOWN INDICATION
  5. MACROGOL [Concomitant]
     Indication: DRUG USE FOR UNKNOWN INDICATION

REACTIONS (5)
  - ARTHRALGIA [None]
  - DYSSTASIA [None]
  - INFLUENZA LIKE ILLNESS [None]
  - MYALGIA [None]
  - SINUSITIS [None]
